FAERS Safety Report 4495857-2 (Version None)
Quarter: 2004Q4

REPORT INFORMATION
  Report Type: 
  Country: None (occurrence: None)
  Receive Date: 20041104
  Receipt Date: 20041022
  Transmission Date: 20050328
  Serious: Yes (Hospitalization)
  Sender: FDA-Public Use
  Company Number: PHO 2004-006

PATIENT
  Age: 54 Year
  Sex: Male

DRUGS (7)
  1. PHOTOFRIN [Suspect]
     Indication: CARCINOMA
     Dosage: 2 MG/KG
     Dates: start: 20040914
  2. PHOTOFRIN [Suspect]
     Indication: METASTASES TO PLEURA
     Dosage: 2 MG/KG
     Dates: start: 20040914
  3. ZANTAC [Concomitant]
  4. ZOFRAN(ANDASETRAN HCL) [Concomitant]
  5. ALBUTEROL [Concomitant]
  6. MS CONTIN (MORPHIN SULFATE SA) [Concomitant]
  7. PERCOCET [Concomitant]

REACTIONS (12)
  - ASCITES [None]
  - CHYLOTHORAX [None]
  - COAGULOPATHY [None]
  - DEEP VEIN THROMBOSIS [None]
  - GASTROINTESTINAL HAEMORRHAGE [None]
  - HAEMOGLOBIN DECREASED [None]
  - HYDROTHORAX [None]
  - INFECTION [None]
  - INTERNATIONAL NORMALISED RATIO INCREASED [None]
  - POST PROCEDURAL COMPLICATION [None]
  - RESPIRATORY DISTRESS [None]
  - WHITE BLOOD CELL COUNT INCREASED [None]
